FAERS Safety Report 9786619 (Version 3)
Quarter: 2014Q1

REPORT INFORMATION
  Report Type: Report from Study
  Country: JP (occurrence: JP)
  Receive Date: 20131227
  Receipt Date: 20140211
  Transmission Date: 20141002
  Serious: Yes (Death)
  Sender: FDA-Public Use
  Company Number: JP-B.I. PHARMACEUTICALS,INC./RIDGEFIELD-2013-BI-40463NB

PATIENT
  Age: 64 Year
  Sex: Male
  Weight: 58.4 kg

DRUGS (4)
  1. PRAZAXA [Suspect]
     Indication: CEREBROVASCULAR ACCIDENT PROPHYLAXIS
     Dosage: 220 MG
     Route: 048
     Dates: start: 20121003, end: 20130401
  2. MAINTATE [Concomitant]
     Indication: ATRIAL FIBRILLATION
     Dosage: 1.25 MG
     Route: 048
     Dates: end: 20130401
  3. BEPRICOR [Concomitant]
     Indication: ATRIAL FIBRILLATION
     Dosage: 100 MG
     Route: 048
     Dates: end: 20130401
  4. OMEPRAL [Concomitant]
     Dosage: 10 MG
     Route: 048
     Dates: end: 20130401

REACTIONS (2)
  - Malignant neoplasm of renal pelvis [Fatal]
  - Atrial fibrillation [Not Recovered/Not Resolved]
